FAERS Safety Report 7934575-2 (Version None)
Quarter: 2011Q4

REPORT INFORMATION
  Report Type: 
  Country: None (occurrence: None)
  Receive Date: 20111122
  Receipt Date: 20111107
  Transmission Date: 20120403
  Serious: Yes (Other)
  Sender: FDA-Public Use
  Company Number: ES-WATSON-2011-19251

PATIENT
  Age: 50 Year
  Sex: Male

DRUGS (1)
  1. PREDNISONE TAB [Suspect]
     Indication: NEUROPATHY PERIPHERAL
     Dosage: 60 MG, DAILY
     Route: 048

REACTIONS (2)
  - NEUROPATHY PERIPHERAL [None]
  - CONDITION AGGRAVATED [None]
